FAERS Safety Report 16389519 (Version 1)
Quarter: 2019Q3

REPORT INFORMATION
  Report Type: Spontaneous
  Country: US (occurrence: US)
  Receive Date: 20190603
  Receipt Date: 20190603
  Transmission Date: 20191004
  Serious: Yes (Life-Threatening, Disabling)
  Sender: FDA-Public Use
  Company Number: None

PATIENT
  Age: 34 Year
  Sex: Female
  Weight: 57.6 kg

DRUGS (7)
  1. NITROFURANTOIN 50MG CAPSULE [Concomitant]
     Active Substance: NITROFURANTOIN
  2. DOXYCYCLINE HYCLATE 20 MG TABLET [Concomitant]
  3. VALACYCLOVIR HCL 500MG [Concomitant]
     Active Substance: VALACYCLOVIR HYDROCHLORIDE
  4. ORILISSA [Suspect]
     Active Substance: ELAGOLIX SODIUM
     Indication: ENDOMETRIOSIS
     Dosage: ?          QUANTITY:1 TABLET(S);?
     Route: 048
     Dates: start: 20190511, end: 20190513
  5. AMPHETAMINE/ADDERRAL 30MG [Concomitant]
  6. DAILY VITAMIN [Concomitant]
  7. FESOL (IRON) [Concomitant]

REACTIONS (1)
  - Adverse drug reaction [None]

NARRATIVE: CASE EVENT DATE: 20190512
